FAERS Safety Report 26127521 (Version 1)
Quarter: 2025Q4

REPORT INFORMATION
  Report Type: Spontaneous
  Country: US (occurrence: US)
  Receive Date: 20251205
  Receipt Date: 20251205
  Transmission Date: 20260117
  Serious: No
  Sender: Hugel Aesthetics
  Company Number: US-Hugel Aesthetics-2189985

PATIENT
  Age: 45 Year

DRUGS (3)
  1. LETYBO [Suspect]
     Active Substance: LETIBOTULINUMTOXINA-WLBG
     Indication: Product used for unknown indication
     Dates: start: 20251027, end: 20251027
  2. DYSPORT [BOTULINUM TOXIN TYPE A?HAEMAGGLUTININ COMPLEX] [Concomitant]
  3. Drug Name: TIRZEPATIDE?Generic Name: TIRZEPATIDE [Concomitant]

REACTIONS (2)
  - Injection site pain [Unknown]
  - Therapy non-responder [Unknown]

NARRATIVE: CASE EVENT DATE: 20251027
